FAERS Safety Report 6579674-5 (Version None)
Quarter: 2010Q1

REPORT INFORMATION
  Report Type: 
  Country: None (occurrence: None)
  Receive Date: 20100212
  Receipt Date: 20100203
  Transmission Date: 20100710
  Serious: Yes (Hospitalization)
  Sender: FDA-Public Use
  Company Number: DE-ROCHE-675371

PATIENT
  Sex: Female
  Weight: 65.7 kg

DRUGS (5)
  1. TRASTUZUMAB [Suspect]
     Dosage: DOSE LEVEL: 6 MG/KG, FORM: VIAL; LAST DOSE PRIOR TO SAE: 29 DEC 2009.
     Route: 042
     Dates: start: 20091208
  2. DOCETAXEL [Suspect]
     Dosage: DOSE LEVEL: 75 MG/M2, FORM: VIAL
     Route: 042
     Dates: start: 20091208
  3. CARBOPLATIN [Suspect]
     Dosage: DOSE LEVEL: 6 AUC, FORM: VIAL
     Route: 042
     Dates: start: 20091208
  4. DEXAMETHASONE [Suspect]
     Indication: DRUG USE FOR UNKNOWN INDICATION
     Route: 065
  5. L-THYROXIN 100 [Concomitant]

REACTIONS (1)
  - REFLUX OESOPHAGITIS [None]
